FAERS Safety Report 11003689 (Version 1)
Quarter: 2015Q2

REPORT INFORMATION
  Report Type: Spontaneous
  Country: US (occurrence: US)
  Receive Date: 20150409
  Receipt Date: 20150409
  Transmission Date: 20150821
  Serious: No
  Sender: FDA-Public Use
  Company Number: US-BIOGENIDEC-2015BI027823

PATIENT
  Sex: Female

DRUGS (1)
  1. AVONEX [Suspect]
     Active Substance: INTERFERON BETA-1A
     Indication: MULTIPLE SCLEROSIS
     Route: 030
     Dates: start: 20010526

REACTIONS (8)
  - Pharyngeal oedema [Unknown]
  - Rhinorrhoea [Unknown]
  - Pain [Unknown]
  - Cough [Unknown]
  - Hypoaesthesia [Unknown]
  - Malaise [Unknown]
  - Vomiting [Unknown]
  - Lacrimation increased [Unknown]
